FAERS Safety Report 4296245-4 (Version None)
Quarter: 2004Q1

REPORT INFORMATION
  Report Type: 
  Country: None (occurrence: None)
  Receive Date: 20040217
  Receipt Date: 20030926
  Transmission Date: 20041129
  Serious: No
  Sender: FDA-Public Use
  Company Number: US-GLAXOSMITHKLINE-A0427675A

PATIENT
  Age: 51 Year
  Sex: Female

DRUGS (3)
  1. LAMICTAL [Suspect]
     Indication: BIPOLAR DISORDER
     Dosage: 25MG PER DAY
     Route: 048
  2. WELLBUTRIN SR [Concomitant]
     Dosage: 150MG TWICE PER DAY
     Route: 048
     Dates: start: 19940101
  3. KLONOPIN [Concomitant]
     Dosage: .05MG THREE TIMES PER DAY
     Route: 048
     Dates: start: 19940101

REACTIONS (1)
  - SKIN LESION [None]
